FAERS Safety Report 22020923 (Version 1)
Quarter: 2023Q1

REPORT INFORMATION
  Report Type: Spontaneous
  Country: US (occurrence: None)
  Receive Date: 20230217
  Receipt Date: 20230217
  Transmission Date: 20230418
  Serious: Yes (Death)
  Sender: FDA-Public Use
  Company Number: None

PATIENT
  Age: 60 Year
  Sex: Male

DRUGS (10)
  1. NEORAL [Suspect]
     Active Substance: CYCLOSPORINE
     Indication: Heart transplant
     Dosage: FREQUENCY : TWICE A DAY;?
     Route: 048
     Dates: start: 20210514, end: 20221228
  2. ACETAMINOPHEN [Concomitant]
     Active Substance: ACETAMINOPHEN
  3. ATENOLOL [Concomitant]
     Active Substance: ATENOLOL
  4. ATORVASTATIN [Concomitant]
     Active Substance: ATORVASTATIN
  5. AZATHIOPRINE [Concomitant]
     Active Substance: AZATHIOPRINE
  6. DICLOFENAC [Concomitant]
     Active Substance: DICLOFENAC
  7. EZETIMIBE [Concomitant]
     Active Substance: EZETIMIBE
  8. FENOFIBRATE [Concomitant]
     Active Substance: FENOFIBRATE
  9. LISINOPRIL [Concomitant]
     Active Substance: LISINOPRIL
  10. VITAMIN B12 [Concomitant]
     Active Substance: CYANOCOBALAMIN

REACTIONS (1)
  - Death [None]

NARRATIVE: CASE EVENT DATE: 20230206
